FAERS Safety Report 6193375-7 (Version None)
Quarter: 2009Q2

REPORT INFORMATION
  Report Type: 
  Country: None (occurrence: None)
  Receive Date: 20090514
  Receipt Date: 20090504
  Transmission Date: 20091009
  Serious: Yes (Death)
  Sender: FDA-Public Use
  Company Number: 2009-01746

PATIENT
  Age: 86 Year
  Sex: Female

DRUGS (2)
  1. VELCADE [Suspect]
     Indication: NON-SMALL CELL LUNG CANCER
     Dates: end: 20090417
  2. ALIMTA [Suspect]
     Indication: NON-SMALL CELL LUNG CANCER
     Dates: end: 20090417

REACTIONS (1)
  - DEATH [None]
